FAERS Safety Report 6261565-0 (Version None)
Quarter: 2009Q3

REPORT INFORMATION
  Report Type: 
  Country: None (occurrence: None)
  Receive Date: 20090702
  Receipt Date: 20090403
  Transmission Date: 20100115
  Serious: No
  Sender: FDA-Public Use
  Company Number: 1000005652

PATIENT
  Sex: Male

DRUGS (1)
  1. BYSTOLIC [Suspect]
     Dosage: (1 IN 1 D),ORAL
     Route: 048

REACTIONS (1)
  - CHEST DISCOMFORT [None]
